FAERS Safety Report 16175218 (Version 1)
Quarter: 2019Q2

REPORT INFORMATION
  Report Type: Spontaneous
  Country: US (occurrence: US)
  Receive Date: 20190409
  Receipt Date: 20190409
  Transmission Date: 20190711
  Serious: No
  Sender: FDA-Public Use
  Company Number: US-PERRIGO-19US000282

PATIENT
  Sex: Female
  Weight: 54.42 kg

DRUGS (2)
  1. SULFACETAMIDE SODIUM. [Suspect]
     Active Substance: SULFACETAMIDE SODIUM
     Dosage: SMALL AMOUNT, QD-BID
     Route: 061
     Dates: start: 20180201
  2. SULFACETAMIDE SODIUM. [Suspect]
     Active Substance: SULFACETAMIDE SODIUM
     Indication: ROSACEA
     Dosage: SMALL AMOUNT, QD-BID
     Route: 061
     Dates: end: 20180131

REACTIONS (1)
  - Off label use [Unknown]
